FAERS Safety Report 20623042 (Version 2)
Quarter: 2022Q2

REPORT INFORMATION
  Report Type: Spontaneous
  Country: US (occurrence: US)
  Receive Date: 20220322
  Receipt Date: 20220401
  Transmission Date: 20220720
  Serious: Yes (Other)
  Sender: FDA-Public Use
  Company Number: US-ALLERGAN-2203506US

PATIENT

DRUGS (1)
  1. DURYSTA [Suspect]
     Active Substance: BIMATOPROST
     Indication: Intraocular pressure test abnormal
     Dosage: 10 ?G, SINGLE
     Route: 031

REACTIONS (2)
  - Cystoid macular oedema [Recovering/Resolving]
  - Visual acuity reduced [Not Recovered/Not Resolved]
